FAERS Safety Report 5771352-5 (Version None)
Quarter: 2008Q2

REPORT INFORMATION
  Report Type: 
  Country: None (occurrence: None)
  Receive Date: 20080613
  Receipt Date: 20080605
  Transmission Date: 20081010
  Serious: Yes (Other)
  Sender: FDA-Public Use
  Company Number: US-JNJFOC-20080403834

PATIENT
  Sex: Female
  Weight: 79.38 kg

DRUGS (4)
  1. FENTANYL TRANSDERMAL SYSTEM [Suspect]
     Indication: BACK PAIN
     Route: 062
  2. FENTANYL TRANSDERMAL SYSTEM [Suspect]
     Indication: NECK PAIN
     Route: 062
  3. FENTANYL TRANSDERMAL SYSTEM [Suspect]
     Indication: DRUG USE FOR UNKNOWN INDICATION
     Route: 062
  4. LIDODERM [Concomitant]
     Route: 062

REACTIONS (5)
  - DRY MOUTH [None]
  - DYSARTHRIA [None]
  - EXPRESSIVE LANGUAGE DISORDER [None]
  - LIP DISORDER [None]
  - UNEVALUABLE EVENT [None]
